FAERS Safety Report 6824403-0 (Version None)
Quarter: 2010Q3

REPORT INFORMATION
  Report Type: 
  Country: None (occurrence: None)
  Receive Date: 20100708
  Receipt Date: 20061020
  Transmission Date: 20110219
  Serious: No
  Sender: FDA-Public Use
  Company Number: US-PFIZER INC-2006129858

PATIENT
  Sex: Female
  Weight: 52.16 kg

DRUGS (21)
  1. CHANTIX [Suspect]
     Indication: SMOKING CESSATION THERAPY
     Dosage: FREQUENCY: BID INTERVAL: EVERY DAY
     Dates: start: 20061007
  2. AMBIEN [Concomitant]
     Indication: INSOMNIA
  3. PROTONIX [Concomitant]
  4. THYROID TAB [Concomitant]
  5. DONNATAL [Concomitant]
  6. CARTIA XT [Concomitant]
  7. COZAAR [Concomitant]
  8. ASPIRIN [Concomitant]
  9. CALCIUM WITH VITAMIN D [Concomitant]
  10. FOSAMAX [Concomitant]
  11. CLARINEX [Concomitant]
  12. MONTELUKAST SODIUM [Concomitant]
  13. ALL OTHER THERAPEUTIC PRODUCTS [Concomitant]
  14. VITAMINS [Concomitant]
  15. REGLAN [Concomitant]
     Indication: HIATUS HERNIA
  16. VITAMIN C [Concomitant]
  17. VITAMIN E [Concomitant]
  18. GARLIC [Concomitant]
  19. FLAXSEED OIL [Concomitant]
  20. MULTI-VITAMINS [Concomitant]
  21. FISH OIL [Concomitant]

REACTIONS (3)
  - ABDOMINAL PAIN UPPER [None]
  - ERUCTATION [None]
  - NAUSEA [None]
